FAERS Safety Report 5018472-0 (Version None)
Quarter: 2006Q2

REPORT INFORMATION
  Report Type: 
  Country: None (occurrence: None)
  Receive Date: 20060530
  Receipt Date: 20050420
  Transmission Date: 20061013
  Serious: Yes (Other)
  Sender: FDA-Public Use
  Company Number: 2005063080

PATIENT
  Age: 79 Year
  Sex: Female

DRUGS (4)
  1. LYRICA [Suspect]
     Indication: NEURALGIA
     Dosage: 100 MG (50 MG, 2 IN 1 D), ORAL
     Route: 048
     Dates: start: 20050217, end: 20050414
  2. AMITRIPTYLINE HCL [Concomitant]
  3. TRAMADOL HCL [Concomitant]
  4. LORAZEPAM [Concomitant]

REACTIONS (4)
  - OEDEMA PERIPHERAL [None]
  - ORBITAL OEDEMA [None]
  - SOMNOLENCE [None]
  - TREMOR [None]
